FAERS Safety Report 25480107 (Version 3)
Quarter: 2025Q3

REPORT INFORMATION
  Report Type: Spontaneous
  Country: US (occurrence: US)
  Receive Date: 20250625
  Receipt Date: 20250905
  Transmission Date: 20251021
  Serious: No
  Sender: NOVARTIS
  Company Number: US-002147023-NVSC2025US097890

PATIENT
  Sex: Male

DRUGS (6)
  1. MEKINIST [Suspect]
     Active Substance: TRAMETINIB DIMETHYL SULFOXIDE
     Indication: Malignant melanoma
     Route: 065
  2. MEKINIST [Suspect]
     Active Substance: TRAMETINIB DIMETHYL SULFOXIDE
     Dosage: 1.5 MG, QD, STRENGTH: 0.5 MG
     Route: 048
     Dates: start: 202504
  3. TAFINLAR [Suspect]
     Active Substance: DABRAFENIB MESYLATE
     Indication: Malignant melanoma
     Dosage: 150 MG, Q12H
     Route: 048
     Dates: start: 202504
  4. TAFINLAR [Suspect]
     Active Substance: DABRAFENIB MESYLATE
     Route: 065
  5. TAFINLAR [Suspect]
     Active Substance: DABRAFENIB MESYLATE
     Dosage: 100 MG, BID (STRENGTH: 50 MG)
     Route: 048
     Dates: start: 202504
  6. MEKINIST [Concomitant]
     Active Substance: TRAMETINIB DIMETHYL SULFOXIDE
     Indication: Product used for unknown indication
     Route: 065

REACTIONS (4)
  - Pyrexia [Unknown]
  - Pain [Unknown]
  - Chills [Unknown]
  - Headache [Unknown]
